FAERS Safety Report 4930146-0 (Version None)
Quarter: 2006Q1

REPORT INFORMATION
  Report Type: 
  Country: None (occurrence: None)
  Receive Date: 20060228
  Receipt Date: 20060213
  Transmission Date: 20060701
  Serious: Yes (Hospitalization)
  Sender: FDA-Public Use
  Company Number: ST-2005-008310

PATIENT
  Age: 60 Year
  Sex: Female
  Weight: 63.5 kg

DRUGS (39)
  1. OLMESARTAN [Suspect]
     Indication: DIABETES MELLITUS NON-INSULIN-DEPENDENT
     Dosage: 10 MG QD PO
     Route: 048
     Dates: start: 20040722, end: 20040914
  2. OLMESARTAN [Suspect]
     Indication: DIABETIC NEPHROPATHY
     Dosage: 10 MG QD PO
     Route: 048
     Dates: start: 20040722, end: 20040914
  3. OLMESARTAN [Suspect]
     Indication: DIABETES MELLITUS NON-INSULIN-DEPENDENT
     Dosage: 20 MG QD PO
     Route: 048
     Dates: start: 20040915, end: 20041013
  4. OLMESARTAN [Suspect]
     Indication: DIABETIC NEPHROPATHY
     Dosage: 20 MG QD PO
     Route: 048
     Dates: start: 20040915, end: 20041013
  5. OLMESARTAN [Suspect]
     Indication: DIABETES MELLITUS NON-INSULIN-DEPENDENT
     Dosage: 40 MG QD PO
     Route: 048
     Dates: start: 20041014, end: 20050126
  6. OLMESARTAN [Suspect]
     Indication: DIABETIC NEPHROPATHY
     Dosage: 40 MG QD PO
     Route: 048
     Dates: start: 20041014, end: 20050126
  7. OLMESARTAN [Suspect]
     Indication: DIABETES MELLITUS NON-INSULIN-DEPENDENT
     Dosage: 20 MG QD PO
     Route: 048
     Dates: start: 20050127, end: 20050216
  8. OLMESARTAN [Suspect]
     Indication: DIABETIC NEPHROPATHY
     Dosage: 20 MG QD PO
     Route: 048
     Dates: start: 20050127, end: 20050216
  9. OLMESARTAN [Suspect]
     Indication: DIABETES MELLITUS NON-INSULIN-DEPENDENT
     Dosage: 10 MG QD PO
     Route: 049
     Dates: start: 20050217, end: 20050321
  10. OLMESARTAN [Suspect]
     Indication: DIABETIC NEPHROPATHY
     Dosage: 10 MG QD PO
     Route: 049
     Dates: start: 20050217, end: 20050321
  11. PLACEBO [Suspect]
     Dosage: PLACEBO
     Dates: start: 20040609, end: 20040721
  12. PLACEBO [Suspect]
     Dosage: 10 MG QD PO
     Route: 048
     Dates: start: 20040722, end: 20040914
  13. PLACEBO [Suspect]
     Dosage: 20 MG QD PO
     Route: 048
     Dates: start: 20040915, end: 20041013
  14. PLACEBO [Suspect]
     Dosage: 40 MG QD PO
     Route: 048
     Dates: start: 20041014, end: 20050126
  15. PLACEBO [Suspect]
     Dosage: 20 MG QD PO
     Route: 048
     Dates: start: 20050127, end: 20050216
  16. PLACEBO [Suspect]
     Dosage: 10 MG QD PO
     Route: 048
     Dates: start: 20050217, end: 20050321
  17. CAPOTEN [Suspect]
     Indication: DIABETIC NEPHROPATHY
     Dosage: 12.5 MG BID PO
     Route: 048
     Dates: start: 20040609, end: 20050322
  18. DIAMICRON [Concomitant]
  19. GLUCOPHAGE ^APIC^ [Concomitant]
  20. GLUCOBAY [Concomitant]
  21. HYDROCHLOROTHIAZIDE [Concomitant]
  22. AVANDIA [Concomitant]
  23. RESONIUM [Concomitant]
  24. LASIX [Concomitant]
  25. ATARAX [Concomitant]
  26. HUMULIN N [Concomitant]
  27. SODIUM BICARBONATE [Concomitant]
  28. ACARBOSE [Concomitant]
  29. SENOKOT [Concomitant]
  30. UNCOUGH [Concomitant]
  31. ZINNAT [Concomitant]
  32. NATURAL NUTRITION ECHINACEA COMPLEX [Concomitant]
  33. UN-BUTANOL [Concomitant]
  34. COUGH MIXTURE A [Concomitant]
  35. AQUEOUS CREAM [Concomitant]
  36. BISOLVON [Concomitant]
  37. PIRITON [Concomitant]
  38. CAPOTEN [Concomitant]
  39. HYPROMELLOSE [Concomitant]

REACTIONS (1)
  - HYPERKALAEMIA [None]
